FAERS Safety Report 19276999 (Version 1)
Quarter: 2021Q2

REPORT INFORMATION
  Report Type: Spontaneous
  Country: JP (occurrence: JP)
  Receive Date: 20210519
  Receipt Date: 20210519
  Transmission Date: 20210717
  Serious: Yes (Hospitalization)
  Sender: FDA-Public Use
  Company Number: NVSJ2021JP006997

PATIENT
  Age: 46 Year
  Sex: Female

DRUGS (1)
  1. FINGOLIMOD. [Suspect]
     Active Substance: FINGOLIMOD
     Indication: SECONDARY PROGRESSIVE MULTIPLE SCLEROSIS
     Dosage: 0.5 MG/DAY
     Route: 065
     Dates: start: 201401, end: 202101

REACTIONS (3)
  - Bladder disorder [Unknown]
  - Paraparesis [Unknown]
  - Anorectal disorder [Unknown]

NARRATIVE: CASE EVENT DATE: 201401
